FAERS Safety Report 20714235 (Version 1)
Quarter: 2022Q2

REPORT INFORMATION
  Report Type: Spontaneous
  Country: US (occurrence: None)
  Receive Date: 20220414
  Receipt Date: 20220414
  Transmission Date: 20220721
  Serious: Yes (Hospitalization)
  Sender: FDA-Public Use
  Company Number: None

PATIENT
  Sex: Male

DRUGS (8)
  1. ENBREL [Suspect]
     Active Substance: ETANERCEPT
     Indication: Rheumatoid arthritis
     Dosage: 50 MG/ML ?INJECT 1ML UNDER THE SKIN (SUBCUTANEOUS INJECTION) ONCE A WEEK.?
     Route: 058
     Dates: start: 20220324
  2. COLCHICINE [Concomitant]
     Active Substance: COLCHICINE
  3. DOXAZOSIN [Concomitant]
     Active Substance: DOXAZOSIN MESYLATE
  4. FLECAINIDE [Concomitant]
     Active Substance: FLECAINIDE
  5. METHOTREXATE [Concomitant]
     Active Substance: METHOTREXATE
  6. SIMVASTATIN [Concomitant]
     Active Substance: SIMVASTATIN
  7. VERAPAMIL [Concomitant]
     Active Substance: VERAPAMIL HYDROCHLORIDE
  8. XELJANZ XR [Concomitant]
     Active Substance: TOFACITINIB CITRATE

REACTIONS (4)
  - Arthritis [None]
  - Loss of personal independence in daily activities [None]
  - Intentional dose omission [None]
  - Pain [None]
